FAERS Safety Report 6302680-2 (Version None)
Quarter: 2009Q3

REPORT INFORMATION
  Report Type: 
  Country: None (occurrence: None)
  Receive Date: 20090810
  Receipt Date: 20090729
  Transmission Date: 20100115
  Serious: Yes (Other)
  Sender: FDA-Public Use
  Company Number: PHEH2009US08440

PATIENT
  Age: 57 Year
  Sex: Female
  Weight: 48.98 kg

DRUGS (9)
  1. RECLAST [Suspect]
     Indication: OSTEOPOROSIS
     Dosage: 5 MG, YEARLY
     Dates: start: 20090301
  2. COMBIPATCH [Concomitant]
  3. VIVELLE-DOT [Concomitant]
  4. CAL-MAG [Concomitant]
  5. NIASPAN [Concomitant]
  6. TESTOSTERONE [Concomitant]
  7. VITAMIN D [Concomitant]
  8. LOVAZA [Concomitant]
  9. ZINLORI [Concomitant]

REACTIONS (2)
  - MUSCULAR WEAKNESS [None]
  - NEURALGIC AMYOTROPHY [None]
